FAERS Safety Report 6035435-7 (Version None)
Quarter: 2009Q1

REPORT INFORMATION
  Report Type: 
  Country: None (occurrence: None)
  Receive Date: 20090112
  Receipt Date: 20090112
  Transmission Date: 20090719
  Serious: Yes (Life-Threatening, Other)
  Sender: FDA-Public Use
  Company Number: None

PATIENT
  Age: 27 Year
  Sex: Female
  Weight: 77.1115 kg

DRUGS (1)
  1. BUPROPION HCL [Suspect]
     Indication: DEPRESSION
     Dosage: 150MG 1 PER DAY PO
     Route: 048

REACTIONS (6)
  - ANXIETY [None]
  - BIPOLAR DISORDER [None]
  - JUDGEMENT IMPAIRED [None]
  - LOSS OF EMPLOYMENT [None]
  - MUSCLE TWITCHING [None]
  - SUICIDAL IDEATION [None]
